FAERS Safety Report 5011680-4 (Version None)
Quarter: 2006Q2

REPORT INFORMATION
  Report Type: 
  Country: None (occurrence: None)
  Receive Date: 20060526
  Receipt Date: 20060515
  Transmission Date: 20061013
  Serious: Yes (Other)
  Sender: FDA-Public Use
  Company Number: AU-BRISTOL-MYERS SQUIBB COMPANY-13377965

PATIENT
  Sex: Female

DRUGS (1)
  1. KENALOG IN ORABASE [Suspect]

REACTIONS (4)
  - ASTHENIA [None]
  - DIZZINESS [None]
  - ORAL PAIN [None]
  - SWOLLEN TONGUE [None]
